FAERS Safety Report 4594635-3 (Version None)
Quarter: 2005Q1

REPORT INFORMATION
  Report Type: 
  Country: None (occurrence: None)
  Receive Date: 20050301
  Receipt Date: 20041110
  Transmission Date: 20050727
  Serious: Yes (Other)
  Sender: FDA-Public Use
  Company Number: US-BRISTOL-MYERS SQUIBB COMPANY-12763827

PATIENT
  Age: 63 Year
  Sex: Male

DRUGS (3)
  1. ERBITUX [Suspect]
     Indication: COLON CANCER
     Route: 042
     Dates: start: 20041110, end: 20041110
  2. DECADRON [Concomitant]
     Indication: PREMEDICATION
     Dates: start: 20041110, end: 20041110
  3. BENADRYL [Concomitant]
     Indication: PREMEDICATION
     Route: 042
     Dates: start: 20041110, end: 20041110

REACTIONS (1)
  - INFUSION RELATED REACTION [None]
